FAERS Safety Report 7266838-0 (Version None)
Quarter: 2011Q1

REPORT INFORMATION
  Report Type: 
  Country: None (occurrence: None)
  Receive Date: 20110201
  Receipt Date: 20110121
  Transmission Date: 20110831
  Serious: Yes (Hospitalization, Other)
  Sender: FDA-Public Use
  Company Number: US-JNJFOC-20110106240

PATIENT
  Sex: Female
  Weight: 73.48 kg

DRUGS (3)
  1. DOXORUBICIN HCL [Suspect]
     Indication: OVARIAN CANCER
     Route: 042
  2. METOPROLOL TARTRATE [Concomitant]
     Indication: HEART RATE IRREGULAR
     Route: 048
  3. LYRICA [Concomitant]
     Indication: DEPRESSION
     Route: 048

REACTIONS (6)
  - NAUSEA [None]
  - PAIN [None]
  - PYREXIA [None]
  - CYSTITIS [None]
  - VOMITING [None]
  - URINARY TRACT INFECTION [None]
